FAERS Safety Report 19420817 (Version 1)
Quarter: 2021Q2

REPORT INFORMATION
  Report Type: Other
  Country: US (occurrence: US)
  Receive Date: 20210615
  Receipt Date: 20210615
  Transmission Date: 20210717
  Serious: Yes (Hospitalization)
  Sender: FDA-Public Use
  Company Number: US-B.BRAUN MEDICAL INC.-2112770

PATIENT
  Age: 41 Year
  Sex: Male

DRUGS (2)
  1. SODIUM CHLORIDE INJECTION USP 0264?7800?09 [Suspect]
     Active Substance: SODIUM CHLORIDE
     Indication: HYPOTENSION
     Route: 042
  2. DISULFIRAM. [Concomitant]
     Active Substance: DISULFIRAM

REACTIONS (1)
  - Drug ineffective [None]
